FAERS Safety Report 23884609 (Version 2)
Quarter: 2024Q3

REPORT INFORMATION
  Report Type: Spontaneous
  Country: CN (occurrence: CN)
  Receive Date: 20240522
  Receipt Date: 20240809
  Transmission Date: 20241017
  Serious: Yes (Other)
  Sender: PFIZER
  Company Number: CN-PFIZER INC-PV202400065085

PATIENT
  Age: 41 Year
  Sex: Male
  Weight: 65 kg

DRUGS (4)
  1. TYGACIL [Suspect]
     Active Substance: TIGECYCLINE
     Indication: Anti-infective therapy
     Dosage: 100 MG, 1X/DAY
     Route: 041
     Dates: start: 20240414, end: 20240414
  2. TYGACIL [Suspect]
     Active Substance: TIGECYCLINE
     Dosage: 50 MG, 2X/DAY
     Route: 041
     Dates: start: 20240414, end: 20240415
  3. TYGACIL [Suspect]
     Active Substance: TIGECYCLINE
     Dosage: 75 MG, 2X/DAY
     Route: 041
     Dates: start: 20240416, end: 20240416
  4. TYGACIL [Suspect]
     Active Substance: TIGECYCLINE
     Dosage: 75 MG, 2X/DAY
     Route: 041
     Dates: start: 20240416, end: 20240418

REACTIONS (4)
  - Drug-induced liver injury [Not Recovered/Not Resolved]
  - Hepatic function abnormal [Not Recovered/Not Resolved]
  - Hepatic enzyme increased [Not Recovered/Not Resolved]
  - Blood bilirubin increased [Not Recovered/Not Resolved]

NARRATIVE: CASE EVENT DATE: 20240418
